FAERS Safety Report 11005061 (Version 4)
Quarter: 2016Q1

REPORT INFORMATION
  Report Type: Report from Study
  Country: US (occurrence: US)
  Receive Date: 20150409
  Receipt Date: 20160304
  Transmission Date: 20160525
  Serious: Yes (Hospitalization, Other)
  Sender: FDA-Public Use
  Company Number: US-SA-2014SA050361

PATIENT
  Age: 64 Year
  Sex: Female

DRUGS (2)
  1. AUBAGIO [Suspect]
     Active Substance: TERIFLUNOMIDE
     Indication: MULTIPLE SCLEROSIS
     Route: 048
     Dates: start: 20150406, end: 20160101
  2. AUBAGIO [Suspect]
     Active Substance: TERIFLUNOMIDE
     Indication: MULTIPLE SCLEROSIS
     Route: 048
     Dates: start: 20140225, end: 20150101

REACTIONS (13)
  - Asthma [Recovering/Resolving]
  - Condition aggravated [Recovering/Resolving]
  - Multiple sclerosis relapse [Unknown]
  - Poor quality sleep [Not Recovered/Not Resolved]
  - Drug dose omission [Unknown]
  - Bronchitis [Recovering/Resolving]
  - Depression [Not Recovered/Not Resolved]
  - Dyspepsia [Unknown]
  - Cough [Recovering/Resolving]
  - Paraesthesia [Recovering/Resolving]
  - Muscle strain [Unknown]
  - Alopecia [Unknown]
  - Hypoaesthesia [Recovering/Resolving]

NARRATIVE: CASE EVENT DATE: 20140411
